FAERS Safety Report 19730135 (Version 2)
Quarter: 2022Q2

REPORT INFORMATION
  Report Type: Spontaneous
  Country: US (occurrence: US)
  Receive Date: 20210820
  Receipt Date: 20220513
  Transmission Date: 20220721
  Serious: No
  Sender: FDA-Public Use
  Company Number: US-LUPIN PHARMACEUTICALS INC.-2021-15065

PATIENT
  Sex: Female

DRUGS (2)
  1. ALBUTEROL SULFATE [Suspect]
     Active Substance: ALBUTEROL SULFATE
     Indication: COVID-19
     Dosage: UNK
  2. ALBUTEROL SULFATE [Suspect]
     Active Substance: ALBUTEROL SULFATE
     Dosage: UNK

REACTIONS (3)
  - Off label use [Unknown]
  - Wrong technique in product usage process [Unknown]
  - No adverse event [Unknown]
